FAERS Safety Report 4648005-X (Version None)
Quarter: 2005Q2

REPORT INFORMATION
  Report Type: 
  Country: None (occurrence: None)
  Receive Date: 20050331
  Receipt Date: 20050114
  Transmission Date: 20051028
  Serious: No
  Sender: FDA-Public Use
  Company Number: 05P-163-0286779-00

PATIENT
  Age: 68 Year
  Sex: Female
  Weight: 63.5036 kg

DRUGS (10)
  1. HUMIRA [Suspect]
     Indication: RHEUMATOID ARTHRITIS
     Dosage: 40 MG, 1 IN 1 WK, SUBCUTANEOUS
     Route: 058
     Dates: start: 20041104, end: 20041112
  2. HUMIRA [Suspect]
     Indication: RHEUMATOID ARTHRITIS
     Dosage: 40 MG, 1 IN 1 WK, SUBCUTANEOUS
     Route: 058
     Dates: start: 20041112
  3. . [Concomitant]
  4. METHOTREXATE [Concomitant]
  5. CIMETIDINE [Concomitant]
  6. ATENOLOL [Concomitant]
  7. QUININE SULFATE [Concomitant]
  8. DICLOFENAC SODIUM [Concomitant]
  9. ACETYL SALICYLIC ACID USP BAT [Concomitant]
  10. FOLIC ACID [Concomitant]

REACTIONS (1)
  - INFECTED INSECT BITE [None]
